FAERS Safety Report 8186341-3 (Version None)
Quarter: 2012Q1

REPORT INFORMATION
  Report Type: 
  Country: None (occurrence: None)
  Receive Date: 20120306
  Receipt Date: 20120227
  Transmission Date: 20120608
  Serious: Yes (Hospitalization)
  Sender: FDA-Public Use
  Company Number: US-BAYER-2011-058767

PATIENT
  Age: 27 Year
  Sex: Female
  Weight: 61 kg

DRUGS (2)
  1. YAZ [Suspect]
     Indication: ORAL CONTRACEPTION
     Dosage: UNK
     Dates: start: 20080917, end: 20090715
  2. MULTI-VITAMINS [Concomitant]
     Route: 048

REACTIONS (10)
  - PELVIC VENOUS THROMBOSIS [None]
  - DEEP VEIN THROMBOSIS [None]
  - DYSPNOEA [None]
  - PAIN IN EXTREMITY [None]
  - EMOTIONAL DISTRESS [None]
  - PULMONARY EMBOLISM [None]
  - MUSCULOSKELETAL STIFFNESS [None]
  - BACK PAIN [None]
  - OEDEMA PERIPHERAL [None]
  - ANXIETY [None]
